FAERS Safety Report 8351979-7 (Version None)
Quarter: 2012Q2

REPORT INFORMATION
  Report Type: 
  Country: None (occurrence: None)
  Receive Date: 20120510
  Receipt Date: 20120510
  Transmission Date: 20120825
  Serious: Yes (Other)
  Sender: FDA-Public Use
  Company Number: None

PATIENT
  Age: 46 Year
  Sex: Female
  Weight: 68.0396 kg

DRUGS (1)
  1. TOPIRAMATE [Suspect]
     Indication: MIGRAINE PROPHYLAXIS
     Dosage: 25 MG 2 TABS/DAY PO
     Route: 048
     Dates: start: 20120326, end: 20120508

REACTIONS (15)
  - DECREASED APPETITE [None]
  - URINE ABNORMALITY [None]
  - DYSGEUSIA [None]
  - PARAESTHESIA [None]
  - DEPRESSION [None]
  - IRRITABILITY [None]
  - INSOMNIA [None]
  - VISION BLURRED [None]
  - AMNESIA [None]
  - CONFUSIONAL STATE [None]
  - VISUAL ACUITY REDUCED [None]
  - WEIGHT DECREASED [None]
  - DISTURBANCE IN ATTENTION [None]
  - NERVOUSNESS [None]
  - SOMNOLENCE [None]
